FAERS Safety Report 9198912 (Version 1)
Quarter: 2013Q1

REPORT INFORMATION
  Report Type: Spontaneous
  Country: FR (occurrence: None)
  Receive Date: 20130326
  Receipt Date: 20130326
  Transmission Date: 20140127
  Serious: Yes (Hospitalization)
  Sender: FDA-Public Use
  Company Number: B0876847A

PATIENT
  Age: 94 Year
  Sex: Male

DRUGS (2)
  1. FONDAPARINUX SODIUM [Suspect]
     Indication: PRODUCT USED FOR UNKNOWN INDICATION
  2. TINZAPARIN SODIUM [Suspect]
     Indication: PRODUCT USED FOR UNKNOWN INDICATION
     Route: 058

REACTIONS (2)
  - Blood blister [None]
  - Condition aggravated [None]
